FAERS Safety Report 5855769-6 (Version None)
Quarter: 2008Q3

REPORT INFORMATION
  Report Type: 
  Country: None (occurrence: None)
  Receive Date: 20080821
  Receipt Date: 20080812
  Transmission Date: 20090109
  Serious: Yes (Death)
  Sender: FDA-Public Use
  Company Number: 2008AL009543

PATIENT
  Age: 83 Year
  Sex: Female

DRUGS (7)
  1. SPIRONOLACTONE [Suspect]
     Indication: DIARRHOEA
     Dosage: 25 MG; QAM; PO
     Route: 048
     Dates: start: 20060201, end: 20070301
  2. FUROSEMIDE [Concomitant]
  3. POTASSIUM CHLORIDE [Concomitant]
  4. WARFARIN SODIUM [Concomitant]
  5. CARVEDILOL [Concomitant]
  6. TRANDOLAPRIL [Concomitant]
  7. ENALAPRIL MALEATE [Concomitant]

REACTIONS (5)
  - ANURIA [None]
  - BLOOD POTASSIUM DECREASED [None]
  - GASTRIC CANCER [None]
  - OEDEMA PERIPHERAL [None]
  - TACHYCARDIA [None]
